FAERS Safety Report 5789279-1 (Version None)
Quarter: 2008Q2

REPORT INFORMATION
  Report Type: 
  Country: None (occurrence: None)
  Receive Date: 20080625
  Receipt Date: 20080625
  Transmission Date: 20081010
  Serious: Yes (Other)
  Sender: FDA-Public Use
  Company Number: None

PATIENT
  Age: 51 Year
  Sex: Female
  Weight: 51.7101 kg

DRUGS (1)
  1. EVISTA [Suspect]
     Indication: OSTEOPOROSIS
     Dosage: 60MG 1 TIME EACH DAY PO
     Route: 048
     Dates: start: 20061228, end: 20080630

REACTIONS (2)
  - UTERINE ENLARGEMENT [None]
  - WEIGHT INCREASED [None]
